FAERS Safety Report 9315623 (Version 4)
Quarter: 2013Q3

REPORT INFORMATION
  Report Type: Spontaneous
  Country: JP (occurrence: JP)
  Receive Date: 20130529
  Receipt Date: 20130719
  Transmission Date: 20140515
  Serious: Yes (Other)
  Sender: FDA-Public Use
  Company Number: JP-B.I. PHARMACEUTICALS,INC./RIDGEFIELD-2013-BI-14268YA

PATIENT
  Sex: Male

DRUGS (3)
  1. HARNAL (TAMSULOSIN) ORODISPERSABLE CR [Suspect]
     Indication: BENIGN PROSTATIC HYPERPLASIA
     Dosage: 0.2 MG
     Route: 048
     Dates: start: 20120303
  2. BETANIS [Suspect]
     Indication: POLLAKIURIA
     Dosage: 50 MG
     Route: 048
     Dates: start: 20130425, end: 20130426
  3. VESICARE [Suspect]
     Indication: POLLAKIURIA
     Dosage: 5 MG
     Route: 048
     Dates: start: 20120303, end: 20130424

REACTIONS (3)
  - Urinary retention [Recovered/Resolved]
  - Pollakiuria [Unknown]
  - Drug ineffective [Unknown]
